FAERS Safety Report 4696471-6 (Version None)
Quarter: 2005Q2

REPORT INFORMATION
  Report Type: 
  Country: None (occurrence: None)
  Receive Date: 20050621
  Receipt Date: 20050218
  Transmission Date: 20051028
  Serious: Yes (Hospitalization, Other)
  Sender: FDA-Public Use
  Company Number: US-MERCK-0502USA02423

PATIENT
  Age: 80 Year
  Sex: Female
  Weight: 82 kg

DRUGS (2)
  1. VIOXX [Suspect]
     Indication: OSTEOARTHRITIS
     Route: 048
     Dates: start: 20020311
  2. DIGOXIN [Suspect]
     Route: 065

REACTIONS (3)
  - ATRIAL FIBRILLATION [None]
  - BRADYCARDIA [None]
  - THERAPEUTIC AGENT TOXICITY [None]
